FAERS Safety Report 6897176-3 (Version None)
Quarter: 2010Q3

REPORT INFORMATION
  Report Type: 
  Country: None (occurrence: None)
  Receive Date: 20100802
  Receipt Date: 20070419
  Transmission Date: 20110219
  Serious: No
  Sender: FDA-Public Use
  Company Number: US-PFIZER INC-2007012145

PATIENT
  Sex: Female

DRUGS (1)
  1. LYRICA [Suspect]
     Indication: PAIN

REACTIONS (5)
  - ARTHRITIS [None]
  - DRUG INEFFECTIVE [None]
  - INTERVERTEBRAL DISC DISPLACEMENT [None]
  - SPINAL COLUMN STENOSIS [None]
  - SPINAL OSTEOARTHRITIS [None]
